FAERS Safety Report 8333934-6 (Version None)
Quarter: 2012Q2

REPORT INFORMATION
  Report Type: 
  Country: None (occurrence: None)
  Receive Date: 20120503
  Receipt Date: 20120430
  Transmission Date: 20120825
  Serious: Yes (Hospitalization)
  Sender: FDA-Public Use
  Company Number: BE-ROCHE-1003859

PATIENT
  Age: 44 Year
  Sex: Female
  Weight: 68 kg

DRUGS (10)
  1. VEMURAFENIB [Suspect]
     Dosage: LAST DOSE PRIOR TO SAE 26/JAN/2012. TEMPORARILY INTERRUPTED.
     Route: 048
     Dates: start: 20120120, end: 20120126
  2. ZOMETA [Concomitant]
     Dosage: 04 MONTHLY PER MG
     Dates: start: 20110909
  3. VEMURAFENIB [Suspect]
     Dates: start: 20120312
  4. ACETAMINOPHEN W/ CODEINE [Concomitant]
     Dates: start: 20110101
  5. D-CURE [Concomitant]
     Dosage: DAILY DOSE: 10 ML (AS REQUIRED)
     Dates: start: 20120101
  6. SERTRALINE HYDROCHLORIDE [Concomitant]
     Dates: start: 20120228
  7. VEMURAFENIB [Suspect]
     Route: 048
     Dates: start: 20120131, end: 20120307
  8. VEMURAFENIB [Suspect]
     Indication: METASTATIC MALIGNANT MELANOMA
     Dosage: LAST DOSE PRIOR TO SAE 27/DEC/2011. TEMPORARILY INTERRUPTED.
     Route: 048
     Dates: start: 20110909, end: 20111227
  9. XANAX [Concomitant]
     Dates: start: 20110101
  10. MOVIPREP [Concomitant]
     Dosage: DAILY DOSE :1 SACHET
     Dates: start: 20120103

REACTIONS (1)
  - EPILEPSY [None]
